FAERS Safety Report 5979495-8 (Version None)
Quarter: 2008Q4

REPORT INFORMATION
  Report Type: 
  Country: None (occurrence: None)
  Receive Date: 20081126
  Receipt Date: 20081113
  Transmission Date: 20090506
  Serious: Yes (Hospitalization)
  Sender: FDA-Public Use
  Company Number: 2008002626

PATIENT
  Age: 79 Year
  Sex: Female

DRUGS (8)
  1. ERLOTINIB (ERLOTINIB) (TABLET) (ERLOTINIB) [Suspect]
     Indication: LARGE CELL CARCINOMA OF THE RESPIRATORY TRACT STAGE UNSPECIFIED
     Dosage: (150 MG, QD), ORAL
     Route: 048
     Dates: start: 20080902, end: 20080907
  2. ADALATA L [Concomitant]
  3. THEOLONG (THEOPHYLLINE) [Concomitant]
  4. PANALDINE (TICLOPIDINE HYDROCHLORIDE) [Concomitant]
  5. SINGULAIR [Concomitant]
  6. NITRAZEPAM [Concomitant]
  7. QVAR [Concomitant]
  8. ENSURE LIQUID [Concomitant]

REACTIONS (5)
  - CELLULITIS [None]
  - DISEASE PROGRESSION [None]
  - LYMPHADENITIS [None]
  - MUSCULOSKELETAL STIFFNESS [None]
  - WOUND [None]
